FAERS Safety Report 18721085 (Version 1)
Quarter: 2021Q1

REPORT INFORMATION
  Report Type: Spontaneous
  Country: US (occurrence: US)
  Receive Date: 20210109
  Receipt Date: 20210109
  Transmission Date: 20210419
  Serious: Yes (Other)
  Sender: FDA-Public Use
  Company Number: US-SHILPA MEDICARE LIMITED-SML-US-2020-00926

PATIENT
  Age: 65 Year
  Sex: Male

DRUGS (3)
  1. ZOLEDRONIC ACID, UNKNOWN [Suspect]
     Active Substance: ZOLEDRONIC ACID
     Indication: HYPERCALCAEMIA
     Route: 065
  2. PEMBROLIZUMAB. [Concomitant]
     Active Substance: PEMBROLIZUMAB
     Indication: PARATHYROID TUMOUR BENIGN
     Dosage: COMPLETED FIVE CYCLES OF TREATMENT OVER A COURSE OF 4 MONTHS
     Route: 065
  3. DENOSUMAB [Concomitant]
     Active Substance: DENOSUMAB
     Indication: PARATHYROID TUMOUR BENIGN
     Dosage: RECEIVED TWO DOSES
     Route: 065

REACTIONS (2)
  - Hypercalcaemia [Recovered/Resolved]
  - Drug ineffective [Unknown]
